FAERS Safety Report 25022144 (Version 1)
Quarter: 2025Q1

REPORT INFORMATION
  Report Type: Spontaneous
  Country: NL (occurrence: NL)
  Receive Date: 20250228
  Receipt Date: 20250228
  Transmission Date: 20250408
  Serious: Yes (Hospitalization)
  Sender: NOVO NORDISK
  Company Number: None

PATIENT
  Age: 41 Year
  Sex: Female
  Weight: 85 kg

DRUGS (1)
  1. SEMAGLUTIDE [Suspect]
     Active Substance: SEMAGLUTIDE
     Indication: Product used for unknown indication
     Dosage: 0.25 MG, QW(ONE TIME PER WEEK ONE DOSE)
     Dates: start: 20250213

REACTIONS (5)
  - Malaise [Recovering/Resolving]
  - Oropharyngeal swelling [Recovering/Resolving]
  - Pharyngeal paraesthesia [Recovering/Resolving]
  - Paraesthesia oral [Recovering/Resolving]
  - Dyspnoea [Recovering/Resolving]
